FAERS Safety Report 5890729-0 (Version None)
Quarter: 2008Q3

REPORT INFORMATION
  Report Type: 
  Country: None (occurrence: None)
  Receive Date: 20080922
  Receipt Date: 20080910
  Transmission Date: 20090109
  Serious: Yes (Other)
  Sender: FDA-Public Use
  Company Number: FR-BAYER-200826181GPV

PATIENT
  Age: 47 Year
  Sex: Female

DRUGS (2)
  1. MIRENA [Suspect]
     Indication: DRUG USE FOR UNKNOWN INDICATION
     Route: 015
     Dates: start: 20061201
  2. MIRENA [Suspect]
     Route: 015
     Dates: start: 20020101, end: 20061201

REACTIONS (2)
  - CHEST PAIN [None]
  - THROMBOPHLEBITIS [None]
